FAERS Safety Report 17478474 (Version 3)
Quarter: 2022Q1

REPORT INFORMATION
  Report Type: Spontaneous
  Country: US (occurrence: US)
  Receive Date: 20200228
  Receipt Date: 20220117
  Transmission Date: 20220423
  Serious: Yes (Other)
  Sender: FDA-Public Use
  Company Number: US-PFIZER INC-2020082977

PATIENT
  Age: 19 Year
  Sex: Female
  Weight: 76.2 kg

DRUGS (2)
  1. GENOTROPIN [Suspect]
     Active Substance: SOMATROPIN
     Indication: Blood growth hormone decreased
     Dosage: 0.4 MG, DAILY(.4MG INJECTION DAILY FROM A 12MG CARTRIDGE)
  2. GENOTROPIN [Suspect]
     Active Substance: SOMATROPIN
     Dosage: 0.6 MG

REACTIONS (6)
  - Nephrolithiasis [Unknown]
  - Product dispensing error [Unknown]
  - Fatigue [Unknown]
  - Somnolence [Unknown]
  - Tearfulness [Unknown]
  - Affect lability [Unknown]

NARRATIVE: CASE EVENT DATE: 20200208
